FAERS Safety Report 5044797-9 (Version None)
Quarter: 2006Q2

REPORT INFORMATION
  Report Type: 
  Country: None (occurrence: None)
  Receive Date: 20060601
  Receipt Date: 20060227
  Transmission Date: 20061013
  Serious: No
  Sender: FDA-Public Use
  Company Number: 2006-BP-0232BP

PATIENT
  Sex: Male

DRUGS (1)
  1. SPIRIVA HANDHALER (TIOTROPIUM BROMIDE) [Suspect]
     Dosage: NR (18 MCG) IH
     Route: 055

REACTIONS (2)
  - GENERALISED ERYTHEMA [None]
  - RASH [None]
